FAERS Safety Report 3985163 (Version 8)
Quarter: 2013Q3

REPORT INFORMATION
  Report Type: Spontaneous
  Country: US (occurrence: US)
  Receive Date: 20030729
  Receipt Date: 20130827
  Transmission Date: 20140515
  Serious: Yes (Hospitalization)
  Sender: FDA-Public Use
  Company Number: 175567

PATIENT
  Age: 40 Year
  Sex: Female
  Weight: 76 kg

DRUGS (3)
  1. AVONEX [Suspect]
     Indication: MULTIPLE SCLEROSIS
     Route: 030
     Dates: start: 19990901, end: 20030630
  2. ADVIL [Concomitant]
     Indication: PREMEDICATION
  3. ALEVE [Concomitant]
     Indication: PREMEDICATION

REACTIONS (11)
  - Renal failure acute [Recovered/Resolved]
  - Renal tubular necrosis [Recovered/Resolved]
  - Acute hepatic failure [Recovered/Resolved]
  - Peptic ulcer [Recovered/Resolved]
  - Supraventricular tachycardia [Not Recovered/Not Resolved]
  - Influenza like illness [Recovered/Resolved]
  - Hepatitis fulminant [Recovered/Resolved]
  - Haemorrhage [Recovered/Resolved]
  - Anti-interferon antibody positive [Unknown]
  - Cardiac disorder [Recovered/Resolved]
  - Hepatic enzyme increased [Recovered/Resolved]
